FAERS Safety Report 9568095 (Version 2)
Quarter: 2013Q3

REPORT INFORMATION
  Report Type: Spontaneous
  Country: US (occurrence: US)
  Receive Date: 20130930
  Receipt Date: 20130930
  Transmission Date: 20140515
  Serious: No
  Sender: FDA-Public Use
  Company Number: US-AMGEN-USASP2013048335

PATIENT
  Age: 45 Year
  Sex: Male

DRUGS (1)
  1. ENBREL [Suspect]
     Indication: PSORIASIS
     Dosage: 50 MG, 2 TIMES/WK
     Route: 058
     Dates: start: 20130318, end: 20130423

REACTIONS (6)
  - Immune system disorder [Recovered/Resolved]
  - Drug hypersensitivity [Unknown]
  - Food allergy [Unknown]
  - Blister [Recovered/Resolved]
  - Molluscum contagiosum [Not Recovered/Not Resolved]
  - Psoriasis [Recovered/Resolved]
